FAERS Safety Report 19330771 (Version 1)
Quarter: 2021Q2

REPORT INFORMATION
  Report Type: Spontaneous
  Country: ZA (occurrence: ZA)
  Receive Date: 20210528
  Receipt Date: 20210528
  Transmission Date: 20210717
  Serious: Yes (Other)
  Sender: FDA-Public Use
  Company Number: ZA-PFIZER INC-2021571513

PATIENT
  Sex: Female

DRUGS (2)
  1. CYTOTEC [Suspect]
     Active Substance: MISOPROSTOL
  2. CYCLOGEST [Suspect]
     Active Substance: PROGESTERONE

REACTIONS (4)
  - Product dispensing error [Unknown]
  - Foetal death [Unknown]
  - Induced labour [Unknown]
  - Contraindicated product administered [Unknown]
